FAERS Safety Report 4906335-8 (Version None)
Quarter: 2006Q1

REPORT INFORMATION
  Report Type: 
  Country: None (occurrence: None)
  Receive Date: 20060206
  Receipt Date: 20060127
  Transmission Date: 20060701
  Serious: Yes (Death, Life-Threatening)
  Sender: FDA-Public Use
  Company Number: 430004E05DEU

PATIENT
  Age: 64 Year
  Sex: Female

DRUGS (3)
  1. NOVANTRONE [Suspect]
     Indication: ACUTE MYELOID LEUKAEMIA
     Dosage: 14 MG, 1 IN 1 DAYS
     Dates: start: 20051103, end: 20051107
  2. CYTARABINE [Suspect]
     Indication: ACUTE MYELOID LEUKAEMIA
     Dosage: 200 MG, 1 IN 1 DAYS
     Dates: start: 20051103, end: 20051109
  3. ETOPOSIDE [Suspect]
     Indication: ACUTE MYELOID LEUKAEMIA
     Dosage: 200 MG, 1 IN 1 DAYS
     Dates: start: 20051103, end: 20051105

REACTIONS (2)
  - FUNGAL SEPSIS [None]
  - LUNG INFILTRATION [None]
